FAERS Safety Report 5485970-5 (Version None)
Quarter: 2007Q4

REPORT INFORMATION
  Report Type: 
  Country: None (occurrence: None)
  Receive Date: 20071012
  Receipt Date: 20071002
  Transmission Date: 20080405
  Serious: Yes (Hospitalization)
  Sender: FDA-Public Use
  Company Number: OSCN-NO-0710S-0396

PATIENT
  Age: 74 Year
  Sex: Female

DRUGS (16)
  1. OMNISCAN [Suspect]
     Indication: HEPATIC CIRRHOSIS
     Dosage: 15 ML, SINGLE DOSE, I.V.
     Route: 042
     Dates: start: 20070911, end: 20070911
  2. OMNISCAN [Suspect]
     Indication: HEPATIC NEOPLASM MALIGNANT
     Dosage: 15 ML, SINGLE DOSE, I.V.
     Route: 042
     Dates: start: 20070911, end: 20070911
  3. LEVOFLOXACIN [Concomitant]
  4. LACTULOSE [Concomitant]
  5. ROXATIDINE ACETATE HCL [Concomitant]
  6. TEPRENONE (SELBEX) [Concomitant]
  7. URSODEOXYCHOLIC ACID (URSO) [Concomitant]
  8. SPIRONOLACTONE [Concomitant]
  9. URAPIDIL (EBRANTIL) [Concomitant]
  10. DISTIGMINE BROMIDE (UBRETID) [Concomitant]
  11. LASIX [Concomitant]
  12. AMINOLEBAN EN [Concomitant]
  13. TRIMEBUTINE MALEATE (CEREKINON) [Concomitant]
  14. KANAMYCIN [Concomitant]
  15. METOCLOPRAMIDE (PRIMPERAN) [Concomitant]
  16. LACTOBACILLUS BIFIDUS, LYOPHILIZED (LAC B) [Concomitant]

REACTIONS (6)
  - ERYTHEMA [None]
  - OEDEMA PERIPHERAL [None]
  - PAIN [None]
  - PAIN IN EXTREMITY [None]
  - PYREXIA [None]
  - VOMITING [None]
